FAERS Safety Report 4896651-0 (Version None)
Quarter: 2006Q1

REPORT INFORMATION
  Report Type: 
  Country: None (occurrence: None)
  Receive Date: 20060131
  Receipt Date: 20060123
  Transmission Date: 20060701
  Serious: Yes (Hospitalization)
  Sender: FDA-Public Use
  Company Number: AU-ROCHE-433355

PATIENT
  Age: 86 Year
  Sex: Male

DRUGS (11)
  1. CEFTRIAXONE SODIUM [Suspect]
     Route: 042
     Dates: start: 20040916, end: 20040920
  2. AZITHROMYCIN [Suspect]
     Route: 048
     Dates: start: 20040916, end: 20040921
  3. WARFARIN SODIUM [Suspect]
     Indication: DRUG USE FOR UNKNOWN INDICATION
     Dosage: LONG TERM.
     Route: 065
  4. ATORVASTATIN CALCIUM [Concomitant]
     Dosage: LONG TERM.
  5. FRUSEMIDE [Concomitant]
     Dosage: LONG TERM.
  6. ENALAPRIL MALEATE [Concomitant]
     Dosage: LONG TERM.
  7. AMILORIDE HYDROCHLORIDE [Concomitant]
     Dates: start: 20040918
  8. SALBUTAMOL [Concomitant]
     Dosage: FORM REPORTED AS INHALATION.
     Route: 055
     Dates: start: 20040916
  9. COMBIVENT [Concomitant]
     Dosage: FORM REPORTED AS INHALATION.
     Route: 055
     Dates: start: 20040916
  10. NILSTAT [Concomitant]
     Route: 048
     Dates: start: 20040917
  11. PARACETAMOL [Concomitant]
     Dates: start: 20040920

REACTIONS (2)
  - HEPATIC ENZYME INCREASED [None]
  - INTERNATIONAL NORMALISED RATIO INCREASED [None]
